FAERS Safety Report 15522936 (Version 4)
Quarter: 2018Q4

REPORT INFORMATION
  Report Type: Report from Study
  Country: None (occurrence: BR)
  Receive Date: 20181017
  Receipt Date: 20181122
  Transmission Date: 20190205
  Serious: No
  Sender: FDA-Public Use
  Company Number: BR-ABBVIE-18K-020-2521586-00

PATIENT
  Sex: Male
  Weight: 79 kg

DRUGS (2)
  1. HUMIRA [Suspect]
     Active Substance: ADALIMUMAB
     Indication: PSORIASIS
     Dosage: WEEK 0
     Route: 058
     Dates: start: 20180514, end: 20180514
  2. HUMIRA [Suspect]
     Active Substance: ADALIMUMAB
     Dosage: WEEK 2
     Route: 058

REACTIONS (6)
  - Injection site pain [Recovered/Resolved]
  - Dental caries [Unknown]
  - Psoriasis [Not Recovered/Not Resolved]
  - Hypertension [Unknown]
  - Drug ineffective [Unknown]
  - Incorrect route of product administration [Unknown]

NARRATIVE: CASE EVENT DATE: 2018
